FAERS Safety Report 4926794-4 (Version None)
Quarter: 2006Q1

REPORT INFORMATION
  Report Type: 
  Country: None (occurrence: None)
  Receive Date: 20060228
  Receipt Date: 20050616
  Transmission Date: 20060701
  Serious: Yes (Life-Threatening, Hospitalization, Other)
  Sender: FDA-Public Use
  Company Number: US-GLAXOSMITHKLINE-A0563015A

PATIENT
  Sex: Female

DRUGS (2)
  1. LAMICTAL [Suspect]
     Indication: BIPOLAR DISORDER
     Route: 048
     Dates: start: 20050501, end: 20050605
  2. NO CONCURRENT MEDICATION [Concomitant]

REACTIONS (4)
  - EYE DISORDER [None]
  - MOUTH ULCERATION [None]
  - OESOPHAGEAL NEOPLASM [None]
  - STEVENS-JOHNSON SYNDROME [None]
